FAERS Safety Report 4894142-4 (Version None)
Quarter: 2006Q1

REPORT INFORMATION
  Report Type: 
  Country: None (occurrence: None)
  Receive Date: 20060127
  Receipt Date: 20050822
  Transmission Date: 20060701
  Serious: No
  Sender: FDA-Public Use
  Company Number: US-GLAXOSMITHKLINE-A0571252A

PATIENT
  Age: 53 Year
  Sex: Female

DRUGS (4)
  1. BUPROPION [Suspect]
     Dosage: 150MG TWICE PER DAY
     Route: 048
     Dates: start: 20050820
  2. LAMICTAL [Suspect]
     Indication: BIPOLAR DISORDER
     Dosage: 100MG TWICE PER DAY
     Route: 048
     Dates: start: 20030101
  3. CLONAZEPAM [Concomitant]
  4. GEODON [Concomitant]

REACTIONS (1)
  - INSOMNIA [None]
